FAERS Safety Report 11802846 (Version 1)
Quarter: 2015Q4

REPORT INFORMATION
  Report Type: Spontaneous
  Country: US (occurrence: US)
  Receive Date: 20151204
  Receipt Date: 20151204
  Transmission Date: 20160305
  Serious: Yes (Death, Hospitalization)
  Sender: FDA-Public Use
  Company Number: US-JUBILANT CADISTA PHARMACEUTICALS-2015JUB00395

PATIENT
  Age: 70 Year
  Sex: Female

DRUGS (2)
  1. CYCLOSPORINE. [Suspect]
     Active Substance: CYCLOSPORINE
     Dosage: UNK
     Route: 065
     Dates: start: 2014, end: 2014
  2. PREDNISONE. [Suspect]
     Active Substance: PREDNISONE
     Dosage: 40 MG, 1X/DAY
     Dates: start: 2014, end: 2014

REACTIONS (3)
  - Septic shock [Fatal]
  - Bronchopulmonary aspergillosis [Fatal]
  - Multi-organ failure [Fatal]

NARRATIVE: CASE EVENT DATE: 2014
